FAERS Safety Report 19399708 (Version 1)
Quarter: 2021Q2

REPORT INFORMATION
  Report Type: Spontaneous
  Country: PL (occurrence: PL)
  Receive Date: 20210610
  Receipt Date: 20210610
  Transmission Date: 20210717
  Serious: Yes (Hospitalization)
  Sender: FDA-Public Use
  Company Number: PL-MYLANLABS-2021M1033751

PATIENT
  Age: 34 Year
  Sex: Male

DRUGS (2)
  1. OLANZAPINE. [Suspect]
     Active Substance: OLANZAPINE
     Indication: PRODUCT USED FOR UNKNOWN INDICATION
     Dosage: OLANAZAPINE (15 MG/D)
  2. RISPERIDONE. [Suspect]
     Active Substance: RISPERIDONE
     Indication: PRODUCT USED FOR UNKNOWN INDICATION
     Dosage: RISPERIDONE 6 MG/D WAS ADDED TO OLANAZAPINE 15 MG/D
     Dates: start: 2003

REACTIONS (2)
  - Therapeutic product effect incomplete [Unknown]
  - Dyskinesia [Unknown]
